FAERS Safety Report 14522674 (Version 1)
Quarter: 2018Q1

REPORT INFORMATION
  Report Type: Report from Study
  Country: CO (occurrence: CO)
  Receive Date: 20180212
  Receipt Date: 20180212
  Transmission Date: 20180509
  Serious: Yes (Life-Threatening, Hospitalization)
  Sender: FDA-Public Use
  Company Number: PHHY2018CO023150

PATIENT
  Sex: Female
  Weight: 51 kg

DRUGS (1)
  1. AFINITOR [Suspect]
     Active Substance: EVEROLIMUS
     Indication: BREAST CANCER
     Dosage: 10 MG, QD
     Route: 048
     Dates: start: 20180116

REACTIONS (6)
  - Toxicity to various agents [Unknown]
  - Pneumonia [Unknown]
  - Pneumonitis [Unknown]
  - Limb discomfort [Unknown]
  - Oedema peripheral [Unknown]
  - Product quality issue [Unknown]
